FAERS Safety Report 6349458-1 (Version None)
Quarter: 2009Q3

REPORT INFORMATION
  Report Type: 
  Country: None (occurrence: None)
  Receive Date: 20090911
  Receipt Date: 20090903
  Transmission Date: 20100115
  Serious: No
  Sender: FDA-Public Use
  Company Number: US-B.I. PHARMACEUTICALS,INC./RIDGEFIELD-2009-BP-10442BP

PATIENT
  Sex: Male

DRUGS (4)
  1. ZANTAC 75 [Suspect]
     Indication: DYSPEPSIA
     Dosage: 150 MG
     Route: 048
     Dates: start: 20090801, end: 20090908
  2. ZANTAC 75 [Suspect]
     Indication: GASTROOESOPHAGEAL REFLUX DISEASE
  3. LISINOPRIL [Concomitant]
     Indication: HYPERTENSION
  4. SIMVASTATIN [Concomitant]
     Indication: BLOOD CHOLESTEROL INCREASED

REACTIONS (1)
  - DRUG INEFFECTIVE [None]
